FAERS Safety Report 25485364 (Version 1)
Quarter: 2025Q2

REPORT INFORMATION
  Report Type: Spontaneous
  Country: PH (occurrence: PH)
  Receive Date: 20250626
  Receipt Date: 20250626
  Transmission Date: 20250717
  Serious: Yes (Death, Hospitalization, Other)
  Sender: TAKEDA
  Company Number: PH-TAKEDA-2025TUS053246

PATIENT

DRUGS (1)
  1. FRUQUINTINIB [Suspect]
     Active Substance: FRUQUINTINIB
     Indication: Product used for unknown indication

REACTIONS (2)
  - Death [Fatal]
  - Hyponatraemia [Unknown]
